FAERS Safety Report 6656241-6 (Version None)
Quarter: 2010Q1

REPORT INFORMATION
  Report Type: 
  Country: None (occurrence: None)
  Receive Date: 20100326
  Receipt Date: 20100326
  Transmission Date: 20100710
  Serious: Yes (Hospitalization, Other)
  Sender: FDA-Public Use
  Company Number: None

PATIENT
  Sex: Female
  Weight: 57.1532 kg

DRUGS (3)
  1. PEGASYS [Suspect]
     Indication: HEPATITIS C
     Dosage: 180 MCG/0.5 ML PFS WEEKLY SQ
     Route: 058
     Dates: start: 20100316
  2. RIBAPAK 400/400MG TAB THREE RIVERS [Suspect]
     Indication: HEPATITIS C
     Dosage: 400MG IN AM 400 MG PM DAILY PO
     Route: 048
     Dates: start: 20100316
  3. PROCRIT [Concomitant]

REACTIONS (1)
  - EPISTAXIS [None]
